FAERS Safety Report 11041596 (Version 1)
Quarter: 2015Q2

REPORT INFORMATION
  Report Type: Spontaneous
  Country: FR (occurrence: FR)
  Receive Date: 20150416
  Receipt Date: 20150416
  Transmission Date: 20150821
  Serious: Yes (Hospitalization)
  Sender: FDA-Public Use
  Company Number: FR-009507513-1504FRA015249

PATIENT
  Age: 45 Year
  Sex: Female

DRUGS (5)
  1. EMEND [Suspect]
     Active Substance: APREPITANT
     Dosage: UNK
     Route: 048
     Dates: start: 201405, end: 20140507
  2. ETOPOSIDE. [Concomitant]
     Active Substance: ETOPOSIDE
     Dosage: 170 MG PER CYCLE (3 DAYS)
     Route: 042
     Dates: start: 20140505, end: 20140507
  3. IFOSFAMIDE. [Suspect]
     Active Substance: IFOSFAMIDE
     Dosage: 6900 MG PER CYLE
     Route: 042
     Dates: start: 20140505, end: 20140507
  4. IFOSFAMIDE. [Suspect]
     Active Substance: IFOSFAMIDE
     Dosage: 6900 MG PER CYLE
     Route: 042
     Dates: start: 20140505, end: 20140507
  5. MESNA. [Concomitant]
     Active Substance: MESNA
     Dosage: UNK
     Dates: start: 201405, end: 201405

REACTIONS (1)
  - Encephalopathy [Recovered/Resolved]

NARRATIVE: CASE EVENT DATE: 20140507
